FAERS Safety Report 16635116 (Version 1)
Quarter: 2019Q3

REPORT INFORMATION
  Report Type: Spontaneous
  Country: GB (occurrence: GB)
  Receive Date: 20190726
  Receipt Date: 20190726
  Transmission Date: 20191004
  Serious: Yes (Other)
  Sender: FDA-Public Use
  Company Number: GB-ROCHE-2363086

PATIENT
  Age: 57 Year
  Sex: Male

DRUGS (5)
  1. GANCICLOVIR. [Suspect]
     Active Substance: GANCICLOVIR
     Indication: CYTOMEGALOVIRUS INFECTION
     Route: 065
     Dates: start: 20190604, end: 20190619
  2. FOSCARNET SODIUM. [Suspect]
     Active Substance: FOSCARNET SODIUM
     Route: 065
  3. FOSCARNET SODIUM. [Suspect]
     Active Substance: FOSCARNET SODIUM
     Route: 065
  4. FOSCARNET SODIUM. [Suspect]
     Active Substance: FOSCARNET SODIUM
     Indication: CYTOMEGALOVIRUS INFECTION
     Route: 065
     Dates: start: 20190619
  5. VALGANCICLOVIR. [Concomitant]
     Active Substance: VALGANCICLOVIR
     Indication: ANTIVIRAL PROPHYLAXIS
     Route: 065
     Dates: start: 20190401

REACTIONS (3)
  - Metabolic disorder [Unknown]
  - Drug resistance [Unknown]
  - Acute kidney injury [Unknown]
